FAERS Safety Report 12193456 (Version 1)
Quarter: 2016Q1

REPORT INFORMATION
  Report Type: Spontaneous
  Country: AU (occurrence: AU)
  Receive Date: 20160320
  Receipt Date: 20160320
  Transmission Date: 20160526
  Serious: Yes (Other)
  Sender: FDA-Public Use
  Company Number: AU-B.I. PHARMACEUTICALS,INC./RIDGEFIELD-2016-BI-15700AU

PATIENT
  Age: 88 Year
  Sex: Female

DRUGS (1)
  1. MICARDIS PLUS [Suspect]
     Active Substance: HYDROCHLOROTHIAZIDE\TELMISARTAN
     Indication: PRODUCT USED FOR UNKNOWN INDICATION
     Dosage: DOSE PER APPLICATION: 80/12.5 MG
     Route: 065

REACTIONS (2)
  - Lymphoma [Unknown]
  - Micturition urgency [Unknown]
